FAERS Safety Report 8210964-6 (Version None)
Quarter: 2012Q1

REPORT INFORMATION
  Report Type: 
  Country: None (occurrence: None)
  Receive Date: 20120229
  Receipt Date: 20110628
  Transmission Date: 20120608
  Serious: Yes (Other)
  Sender: FDA-Public Use
  Company Number: 037952

PATIENT
  Sex: Male

DRUGS (1)
  1. TUSSIONEX [Suspect]
     Dosage: (DOSE AND FREQUENCY UNKNOWN)

REACTIONS (1)
  - DRUG DEPENDENCE [None]
